FAERS Safety Report 5977317-2 (Version None)
Quarter: 2008Q4

REPORT INFORMATION
  Report Type: 
  Country: None (occurrence: None)
  Receive Date: 20081203
  Receipt Date: 20081120
  Transmission Date: 20090506
  Serious: Yes (Hospitalization)
  Sender: FDA-Public Use
  Company Number: PHHY2008RU29311

PATIENT
  Sex: Male

DRUGS (3)
  1. VAA489A VAL_AML+TAB [Suspect]
     Indication: HYPERTENSION
     Dosage: 160/10
     Dates: start: 20081109, end: 20081114
  2. BISOPROLOL FUMARATE [Concomitant]
  3. SIOFOR [Concomitant]

REACTIONS (2)
  - CHOLECYSTECTOMY [None]
  - CHOLECYSTITIS [None]
